FAERS Safety Report 6589428-1 (Version None)
Quarter: 2010Q1

REPORT INFORMATION
  Report Type: 
  Country: None (occurrence: None)
  Receive Date: 20100218
  Receipt Date: 20100211
  Transmission Date: 20100710
  Serious: Yes (Other)
  Sender: FDA-Public Use
  Company Number: TR-ABBOTT-10P-161-0625818-00

PATIENT
  Age: 41 Year
  Sex: Female
  Weight: 60 kg

DRUGS (3)
  1. HUMIRA [Suspect]
     Indication: CROHN'S DISEASE
     Route: 058
     Dates: start: 20091005, end: 20091005
  2. HUMIRA [Suspect]
     Route: 058
     Dates: start: 20091019, end: 20091019
  3. HUMIRA [Suspect]
     Route: 058
     Dates: start: 20091113

REACTIONS (1)
  - OVERDOSE [None]
